FAERS Safety Report 22356309 (Version 1)
Quarter: 2023Q2

REPORT INFORMATION
  Report Type: Spontaneous
  Country: US (occurrence: US)
  Receive Date: 20230523
  Receipt Date: 20230523
  Transmission Date: 20230722
  Serious: Yes (Other)
  Sender: FDA-Public Use
  Company Number: US-BRISTOL-MYERS SQUIBB COMPANY-2022-087784

PATIENT
  Age: 89 Year
  Sex: Male

DRUGS (4)
  1. APIXABAN [Suspect]
     Active Substance: APIXABAN
     Indication: Deep vein thrombosis
  2. APIXABAN [Suspect]
     Active Substance: APIXABAN
     Indication: Pulmonary embolism
  3. ENOXAPARIN [Suspect]
     Active Substance: ENOXAPARIN
     Indication: Deep vein thrombosis
  4. ENOXAPARIN [Suspect]
     Active Substance: ENOXAPARIN
     Indication: Pulmonary embolism

REACTIONS (1)
  - Lower gastrointestinal haemorrhage [Unknown]
